FAERS Safety Report 8312921-8 (Version None)
Quarter: 2012Q2

REPORT INFORMATION
  Report Type: 
  Country: None (occurrence: None)
  Receive Date: 20120426
  Receipt Date: 20120418
  Transmission Date: 20120825
  Serious: Yes (Other)
  Sender: FDA-Public Use
  Company Number: ES-ACCORD-013255

PATIENT
  Age: 42 Year

DRUGS (1)
  1. TOPIRAMATE [Suspect]

REACTIONS (3)
  - MYOPIA [None]
  - ANGLE CLOSURE GLAUCOMA [None]
  - CHOROIDAL EFFUSION [None]
